FAERS Safety Report 7865840-5 (Version None)
Quarter: 2011Q4

REPORT INFORMATION
  Report Type: 
  Country: None (occurrence: None)
  Receive Date: 20111028
  Receipt Date: 20110307
  Transmission Date: 20120403
  Serious: No
  Sender: FDA-Public Use
  Company Number: US-GLAXOSMITHKLINE-A0916980A

PATIENT
  Age: 68 Year
  Sex: Female

DRUGS (7)
  1. ALBUTEROL [Concomitant]
  2. LISINOPRIL [Concomitant]
  3. CRESTOR [Concomitant]
  4. ZOLPIDEM [Concomitant]
  5. PREDNISONE [Concomitant]
  6. ADVAIR DISKUS 100/50 [Suspect]
     Indication: CHRONIC OBSTRUCTIVE PULMONARY DISEASE
     Dosage: 1PUFF TWICE PER DAY
     Route: 055
  7. NIASPAN [Concomitant]

REACTIONS (5)
  - DRUG ADMINISTRATION ERROR [None]
  - DRUG INEFFECTIVE [None]
  - PRODUCT QUALITY ISSUE [None]
  - ILL-DEFINED DISORDER [None]
  - COUGH [None]
